FAERS Safety Report 8789391 (Version 1)
Quarter: 2012Q4

REPORT INFORMATION
  Report Type: Spontaneous
  Country: US (occurrence: None)
  Receive Date: 20120904
  Receipt Date: 20120904
  Transmission Date: 20130627
  Serious: Yes (Hospitalization)
  Sender: FDA-Public Use
  Company Number: 20120517

PATIENT
  Age: 53 Year
  Sex: Female

DRUGS (2)
  1. PHENYTOIN SODIUM [Suspect]
     Indication: DRUG USE FOR UNKNOWN INDICATION
  2. RISPERIDONE [Suspect]

REACTIONS (4)
  - Hypothermia [None]
  - Blood albumin decreased [None]
  - Toxicity to various agents [None]
  - Drug level increased [None]
